FAERS Safety Report 5114739-6 (Version None)
Quarter: 2006Q3

REPORT INFORMATION
  Report Type: 
  Country: None (occurrence: None)
  Receive Date: 20060926
  Receipt Date: 20060920
  Transmission Date: 20061208
  Serious: Yes (Life-Threatening, Hospitalization, Other)
  Sender: FDA-Public Use
  Company Number: LB-JNJFOC-20060903360

PATIENT
  Age: 63 Year
  Sex: Female

DRUGS (6)
  1. RISPERDAL [Suspect]
     Indication: MANIA
     Route: 048
  2. DEPAKENE [Concomitant]
     Indication: MANIA
     Route: 048
  3. ATIVAN [Concomitant]
     Indication: MANIA
     Route: 048
  4. ORAP [Concomitant]
  5. BENZHEXOL [Concomitant]
     Route: 048
  6. BENZHEXOL [Concomitant]
     Indication: EXTRAPYRAMIDAL DISORDER
     Route: 048

REACTIONS (6)
  - COMA [None]
  - ELECTROENCEPHALOGRAM ABNORMAL [None]
  - EXTENSOR PLANTAR RESPONSE [None]
  - MUSCLE RIGIDITY [None]
  - SEDATION [None]
  - URINARY INCONTINENCE [None]
